FAERS Safety Report 8395413-X (Version None)
Quarter: 2012Q1

REPORT INFORMATION
  Report Type: 
  Country: None (occurrence: None)
  Receive Date: 20120323
  Receipt Date: 20110427
  Transmission Date: 20120608
  Serious: Yes (Hospitalization, Other)
  Sender: FDA-Public Use
  Company Number: 163-21880-11033496

PATIENT
  Age: 53 Year
  Sex: Male
  Weight: 93.8946 kg

DRUGS (14)
  1. LORTAB [Concomitant]
  2. METOPROLOL TARTRATE [Concomitant]
  3. GLIMEPIRIIDE (GLIMEPIRIDE) [Concomitant]
  4. FENTANYL [Concomitant]
  5. METRONIDAZLE (METRONIDAZOLE) [Concomitant]
  6. PROMETHAZINE [Concomitant]
  7. REVLIMID [Suspect]
     Indication: MULTIPLE MYELOMA
     Dosage: 15 MG, 1 IN 1 D ; 15 MG, 14/7 ; 15 MG, EVERY OTHER DAY FOR 14 DAYS
     Dates: start: 20110101
  8. REVLIMID [Suspect]
     Indication: MULTIPLE MYELOMA
     Dosage: 15 MG, 1 IN 1 D ; 15 MG, 14/7 ; 15 MG, EVERY OTHER DAY FOR 14 DAYS
     Dates: start: 20110307
  9. REVLIMID [Suspect]
     Indication: MULTIPLE MYELOMA
     Dosage: 15 MG, 1 IN 1 D ; 15 MG, 14/7 ; 15 MG, EVERY OTHER DAY FOR 14 DAYS
     Dates: start: 20110201
  10. REVLIMID [Suspect]
  11. DEXAMETHASONE [Concomitant]
  12. CIPRO [Concomitant]
  13. CEFUROXIME [Concomitant]
  14. ZOMETA [Concomitant]

REACTIONS (7)
  - FACE OEDEMA [None]
  - PNEUMONIA [None]
  - ANAEMIA [None]
  - NAUSEA [None]
  - HYPOKALAEMIA [None]
  - MUSCLE SPASMS [None]
  - BLOOD COUNT ABNORMAL [None]
